FAERS Safety Report 4666964-6 (Version None)
Quarter: 2005Q2

REPORT INFORMATION
  Report Type: 
  Country: None (occurrence: None)
  Receive Date: 20050518
  Receipt Date: 20040817
  Transmission Date: 20051028
  Serious: Yes (Other)
  Sender: FDA-Public Use
  Company Number: 2004229138US

PATIENT
  Age: 59 Year
  Sex: Female

DRUGS (3)
  1. PROVERA [Suspect]
     Dates: start: 19941101, end: 19951001
  2. PREMPRO [Suspect]
     Dates: start: 19951001, end: 19990222
  3. PREMARIN [Suspect]
     Dates: start: 19941101, end: 19951001

REACTIONS (2)
  - DEEP VEIN THROMBOSIS [None]
  - PULMONARY EMBOLISM [None]
